FAERS Safety Report 6887329-2 (Version None)
Quarter: 2010Q3

REPORT INFORMATION
  Report Type: 
  Country: None (occurrence: None)
  Receive Date: 20100730
  Receipt Date: 20090805
  Transmission Date: 20110219
  Serious: No
  Sender: FDA-Public Use
  Company Number: A0801745A

PATIENT
  Age: 68 Year
  Sex: Female

DRUGS (4)
  1. SUMATRIPTAN SUCCINATE [Suspect]
     Indication: PRODUCT USED FOR UNKNOWN INDICATION
     Dosage: 100MG SINGLE DOSE
     Route: 048
     Dates: start: 20090201
  2. SOMA [Concomitant]
     Dosage: 350MG FOUR TIMES PER DAY
  3. ZOLOFT [Concomitant]
     Dosage: 100MGD PER DAY
  4. TAMOXIFEN CITRATE [Concomitant]
     Dosage: 20MGD PER DAY

REACTIONS (2)
  - BLOOD PRESSURE INCREASED [None]
  - SENSORY DISTURBANCE [None]
